FAERS Safety Report 22176561 (Version 1)
Quarter: 2023Q2

REPORT INFORMATION
  Report Type: Spontaneous
  Country: US (occurrence: US)
  Receive Date: 20230405
  Receipt Date: 20230405
  Transmission Date: 20230721
  Serious: No
  Sender: FDA-Public Use
  Company Number: US-drreddys-LIT/USA/23/0162056

PATIENT
  Age: 14 Year
  Sex: Female

DRUGS (6)
  1. BORTEZOMIB [Suspect]
     Active Substance: BORTEZOMIB
     Indication: Sickle cell disease
     Dosage: FOUR CYCLES
     Route: 042
  2. HUMAN IMMUNOGLOBULIN G [Concomitant]
     Active Substance: HUMAN IMMUNOGLOBULIN G
     Indication: Sickle cell disease
  3. RITUXIMAB [Concomitant]
     Active Substance: RITUXIMAB
     Indication: Sickle cell disease
  4. ALEMTUZUMAB [Concomitant]
     Active Substance: ALEMTUZUMAB
     Indication: Sickle cell disease
  5. FLUDARABINE [Concomitant]
     Active Substance: FLUDARABINE PHOSPHATE
     Indication: Sickle cell disease
  6. MELPHALAN [Concomitant]
     Active Substance: MELPHALAN
     Indication: Sickle cell disease

REACTIONS (1)
  - Drug ineffective for unapproved indication [Unknown]
